FAERS Safety Report 5714982-9 (Version None)
Quarter: 2008Q2

REPORT INFORMATION
  Report Type: 
  Country: None (occurrence: None)
  Receive Date: 20080423
  Receipt Date: 20080416
  Transmission Date: 20081010
  Serious: Yes (Hospitalization)
  Sender: FDA-Public Use
  Company Number: US-SANOFI-SYNTHELABO-A03200800304

PATIENT
  Sex: Female
  Weight: 76.2 kg

DRUGS (7)
  1. HUMIRA [Concomitant]
     Indication: DRUG USE FOR UNKNOWN INDICATION
     Dosage: UNK
     Route: 065
  2. METHOTREXATE [Suspect]
     Indication: DRUG USE FOR UNKNOWN INDICATION
     Dosage: UNK
     Route: 065
  3. PLAQUENIL [Suspect]
     Indication: RHEUMATOID ARTHRITIS
     Route: 048
     Dates: start: 20050428, end: 20050615
  4. PREDNISONE [Suspect]
     Indication: RHEUMATOID ARTHRITIS
     Dosage: UNK
     Route: 065
  5. PREDNISONE [Suspect]
     Route: 065
  6. PROZAC [Concomitant]
     Route: 065
     Dates: start: 19970101
  7. MENEST [Concomitant]
     Route: 065
     Dates: start: 19950101

REACTIONS (9)
  - COUGH [None]
  - DYSPNOEA [None]
  - HEART RATE INCREASED [None]
  - HEPATOTOXICITY [None]
  - HYPERHIDROSIS [None]
  - ILL-DEFINED DISORDER [None]
  - PHARYNGEAL OEDEMA [None]
  - SWOLLEN TONGUE [None]
  - WHEEZING [None]
